FAERS Safety Report 17330478 (Version 1)
Quarter: 2020Q1

REPORT INFORMATION
  Report Type: Spontaneous
  Country: US (occurrence: US)
  Receive Date: 20200128
  Receipt Date: 20200128
  Transmission Date: 20200409
  Serious: No
  Sender: FDA-Public Use
  Company Number: US-TORRENT-00007594

PATIENT
  Sex: Female
  Weight: 90 kg

DRUGS (2)
  1. CELEBREX [Concomitant]
     Active Substance: CELECOXIB
     Indication: OSTEOARTHRITIS
     Dosage: UNKNOWN
  2. CELECOXIB. [Suspect]
     Active Substance: CELECOXIB
     Indication: OSTEOARTHRITIS
     Dosage: TAKING IT FOR 3 AND HALF WEEKS
     Route: 048

REACTIONS (5)
  - Drug ineffective [Unknown]
  - Immobile [Unknown]
  - Malaise [Unknown]
  - Feeling abnormal [Unknown]
  - Product substitution issue [Unknown]
